FAERS Safety Report 8041173-1 (Version None)
Quarter: 2012Q1

REPORT INFORMATION
  Report Type: 
  Country: None (occurrence: None)
  Receive Date: 20120112
  Receipt Date: 20120104
  Transmission Date: 20120608
  Serious: Yes (Other)
  Sender: FDA-Public Use
  Company Number: US-BRISTOL-MYERS SQUIBB COMPANY-16332017

PATIENT
  Sex: Female

DRUGS (2)
  1. TRUVADA [Suspect]
  2. REYATAZ [Suspect]

REACTIONS (2)
  - GASTROINTESTINAL HYPOMOTILITY [None]
  - IMPAIRED GASTRIC EMPTYING [None]
